FAERS Safety Report 6868984-X (Version None)
Quarter: 2010Q3

REPORT INFORMATION
  Report Type: 
  Country: None (occurrence: None)
  Receive Date: 20100722
  Receipt Date: 20080801
  Transmission Date: 20110219
  Serious: Yes (Other)
  Sender: FDA-Public Use
  Company Number: US-PFIZER INC-2008054218

PATIENT
  Sex: Male
  Weight: 104.5 kg

DRUGS (8)
  1. CHANTIX [Suspect]
     Indication: EX-TOBACCO USER
     Route: 048
     Dates: start: 20080601, end: 20080624
  2. SYMBICORT [Concomitant]
  3. CARDIAC THERAPY [Concomitant]
  4. GABAPENTIN [Concomitant]
  5. METOPROLOL [Concomitant]
  6. SIMVASTATIN [Concomitant]
  7. LISINOPRIL [Concomitant]
  8. ZOLOFT [Concomitant]

REACTIONS (3)
  - DIZZINESS [None]
  - NIGHTMARE [None]
  - SUICIDAL IDEATION [None]
